FAERS Safety Report 4790235-0 (Version None)
Quarter: 2005Q3

REPORT INFORMATION
  Report Type: 
  Country: None (occurrence: None)
  Receive Date: 20050914
  Receipt Date: 20041207
  Transmission Date: 20060218
  Serious: Yes (Death)
  Sender: FDA-Public Use
  Company Number: 062-20785-04120411

PATIENT
  Age: 11 Year
  Sex: Female

DRUGS (2)
  1. THALIDOMIDE  - PHARMION (THALIDOMIDE) (50 MILLIGRAM, CAPSULES) [Suspect]
     Indication: ASTROCYTOMA
     Dosage: SEE IMAGE
     Route: 048
     Dates: start: 20040101, end: 20040101
  2. THALIDOMIDE  - PHARMION (THALIDOMIDE) (50 MILLIGRAM, CAPSULES) [Suspect]
     Indication: ASTROCYTOMA
     Dosage: SEE IMAGE
     Route: 048
     Dates: start: 20040907, end: 20040101

REACTIONS (2)
  - DEATH [None]
  - DISEASE PROGRESSION [None]
